FAERS Safety Report 8809710 (Version 2)
Quarter: 2012Q4

REPORT INFORMATION
  Report Type: 
  Country: US (occurrence: US)
  Receive Date: 20120926
  Receipt Date: 20121129
  Transmission Date: 20130627
  Serious: Yes (Death, Other)
  Sender: FDA-Public Use
  Company Number: US-ROCHE-1126778

PATIENT
  Sex: Female

DRUGS (29)
  1. AVASTIN [Suspect]
     Indication: BREAST CANCER FEMALE
     Route: 042
     Dates: start: 20050610, end: 20051123
  2. HERCEPTIN [Concomitant]
     Indication: BREAST CANCER FEMALE
     Route: 065
     Dates: start: 20050104
  3. HERCEPTIN [Concomitant]
     Route: 065
     Dates: start: 20050126
  4. HERCEPTIN [Concomitant]
     Route: 065
     Dates: start: 20050215
  5. HERCEPTIN [Concomitant]
     Route: 065
     Dates: start: 20050308
  6. HERCEPTIN [Concomitant]
     Route: 065
     Dates: start: 20050329
  7. HERCEPTIN [Concomitant]
     Route: 065
     Dates: start: 20050420
  8. HERCEPTIN [Concomitant]
     Route: 065
     Dates: start: 20050511
  9. HERCEPTIN [Concomitant]
     Route: 065
     Dates: start: 20050531
  10. HERCEPTIN [Concomitant]
     Route: 065
     Dates: start: 20050616
  11. HERCEPTIN [Concomitant]
     Route: 065
     Dates: start: 20050610
  12. HERCEPTIN [Concomitant]
     Route: 065
     Dates: start: 20050628
  13. HERCEPTIN [Concomitant]
     Route: 065
     Dates: start: 20050705
  14. HERCEPTIN [Concomitant]
     Route: 065
     Dates: start: 20050714
  15. HERCEPTIN [Concomitant]
     Route: 065
     Dates: start: 20050719
  16. HERCEPTIN [Concomitant]
     Route: 065
     Dates: start: 20050728
  17. HERCEPTIN [Concomitant]
     Route: 065
     Dates: start: 20050803
  18. HERCEPTIN [Concomitant]
     Route: 065
     Dates: start: 20050810
  19. HERCEPTIN [Concomitant]
     Route: 065
     Dates: start: 20050816
  20. HERCEPTIN [Concomitant]
     Route: 065
     Dates: start: 20050823
  21. HERCEPTIN [Concomitant]
     Route: 065
     Dates: start: 20050830
  22. HERCEPTIN [Concomitant]
     Route: 065
     Dates: start: 20050906
  23. HERCEPTIN [Concomitant]
     Route: 065
     Dates: start: 20050913
  24. HERCEPTIN [Concomitant]
     Route: 065
     Dates: start: 20050928
  25. HERCEPTIN [Concomitant]
     Route: 065
     Dates: start: 20051012
  26. HERCEPTIN [Concomitant]
     Route: 065
     Dates: start: 20051026
  27. HERCEPTIN [Concomitant]
     Route: 065
     Dates: start: 20051109
  28. ZOMETA [Concomitant]
     Route: 065
     Dates: start: 20050126
  29. ABRAXANE [Concomitant]

REACTIONS (3)
  - Metastases to lung [Unknown]
  - Metastases to central nervous system [Unknown]
  - Death [Fatal]
